FAERS Safety Report 10263197 (Version 2)
Quarter: 2014Q2

REPORT INFORMATION
  Report Type: Report from Study
  Country: US (occurrence: US)
  Receive Date: 20140626
  Receipt Date: 20140626
  Transmission Date: 20141212
  Serious: Yes (Other)
  Sender: FDA-Public Use
  Company Number: US-MYLANLABS-2014S1006153

PATIENT
  Age: 58 Year
  Sex: Male
  Weight: 77.57 kg

DRUGS (14)
  1. CLOZAPINE TABLETS [Suspect]
     Indication: SCHIZOPHRENIA
     Route: 048
     Dates: start: 201007, end: 20140311
  2. CLOZAPINE TABLETS [Suspect]
     Indication: SCHIZOPHRENIA
     Route: 048
     Dates: start: 20140312
  3. ATIVAN [Concomitant]
     Dosage: 3- 1MG TABLETS
     Route: 048
  4. COGENTIN [Concomitant]
     Route: 048
  5. ATENOLOL [Concomitant]
     Route: 048
  6. FENOFIBRIC ACID [Concomitant]
     Route: 048
  7. FERROUS SULFATE [Concomitant]
     Route: 048
  8. FLUTICASONE [Concomitant]
     Dosage: 50UG PER SPRAY
  9. LEVOTHYROXINE [Concomitant]
     Route: 048
  10. SIMVASTATIN [Concomitant]
     Route: 048
  11. PRILOSEC [Concomitant]
     Route: 048
  12. METFORMIN [Concomitant]
     Indication: DIABETES MELLITUS
     Route: 048
  13. DITROPAN [Concomitant]
     Dosage: DITROPAN XL
     Route: 048
  14. MULTIVITAMIN [Concomitant]
     Route: 048

REACTIONS (3)
  - Granulocytopenia [Recovered/Resolved]
  - Leukopenia [Recovered/Resolved]
  - Upper respiratory tract infection [Not Recovered/Not Resolved]
